FAERS Safety Report 11738988 (Version 2)
Quarter: 2015Q4

REPORT INFORMATION
  Report Type: Spontaneous
  Country: JP (occurrence: JP)
  Receive Date: 20151113
  Receipt Date: 20151204
  Transmission Date: 20160304
  Serious: Yes (Hospitalization, Other)
  Sender: FDA-Public Use
  Company Number: JP-BAYER-2015-463327

PATIENT
  Age: 82 Year
  Sex: Male
  Weight: 47.4 kg

DRUGS (11)
  1. HERBESSER [Concomitant]
     Active Substance: DILTIAZEM HYDROCHLORIDE
     Dosage: DAILY 100 MG
     Route: 048
  2. FERRIC CITRATE [Concomitant]
     Active Substance: TETRAFERRIC TRICITRATE DECAHYDRATE
     Dosage: DAILY DOSE 1500 MG
     Route: 048
  3. MAINTATE [Concomitant]
     Active Substance: BISOPROLOL FUMARATE
     Dosage: DAILY DOSE 10 MG
     Route: 048
  4. WARFARIN [Interacting]
     Active Substance: WARFARIN
     Indication: ATRIAL FIBRILLATION
  5. ITOROL [Concomitant]
     Active Substance: ISOSORBIDE MONONITRATE
     Dosage: 40 MG, DAILY
     Route: 048
  6. BAYASPIRIN [Interacting]
     Active Substance: ASPIRIN
     Indication: ANGINA UNSTABLE
     Dosage: 100 MG DAILY DOSE
     Route: 048
     Dates: start: 20151006
  7. CALCIUM CARBONATE. [Concomitant]
     Active Substance: CALCIUM CARBONATE
     Dosage: DAILY DOSE 1500 MG
     Route: 048
  8. TRAZENTA [Concomitant]
     Active Substance: LINAGLIPTIN
     Dosage: 5 MG, DAILY DOSE
     Route: 048
  9. WARFARIN [Interacting]
     Active Substance: WARFARIN
     Indication: ANGINA UNSTABLE
     Dosage: 1 MG, DAILY
     Route: 048
     Dates: end: 20150914
  10. BAYASPIRIN [Suspect]
     Active Substance: ASPIRIN
     Indication: ANGINA UNSTABLE
     Dosage: 100 MG, QD
     Route: 048
     Dates: end: 20150917
  11. BENZALIN [Concomitant]
     Active Substance: NITRAZEPAM
     Dosage: DAILY DOSE 5 MG
     Route: 048

REACTIONS (6)
  - Gastrointestinal haemorrhage [Recovering/Resolving]
  - Cerebral haemorrhage [Recovered/Resolved with Sequelae]
  - Epilepsy [None]
  - Faeces discoloured [Recovering/Resolving]
  - Labelled drug-drug interaction medication error [None]
  - Gastric ulcer [Recovering/Resolving]

NARRATIVE: CASE EVENT DATE: 20150910
